FAERS Safety Report 7715902-8 (Version None)
Quarter: 2011Q3

REPORT INFORMATION
  Report Type: 
  Country: None (occurrence: None)
  Receive Date: 20110829
  Receipt Date: 20110815
  Transmission Date: 20111222
  Serious: Yes (Other)
  Sender: FDA-Public Use
  Company Number: US-JNJFOC-20110807008

PATIENT
  Age: 83 Year
  Sex: Female

DRUGS (2)
  1. SUDAFED 12 HOUR [Suspect]
     Indication: MULTIPLE ALLERGIES
     Route: 048
  2. SUDAFED 12 HOUR [Suspect]
     Route: 048

REACTIONS (1)
  - THROAT TIGHTNESS [None]
